FAERS Safety Report 23944582 (Version 1)
Quarter: 2024Q2

REPORT INFORMATION
  Report Type: Spontaneous
  Country: TR (occurrence: TR)
  Receive Date: 20240606
  Receipt Date: 20240606
  Transmission Date: 20240715
  Serious: Yes (Hospitalization, Other)
  Sender: FDA-Public Use
  Company Number: TR-SUN PHARMACEUTICAL INDUSTRIES LTD-2024R1-449823

PATIENT
  Age: 27 Year
  Sex: Female

DRUGS (1)
  1. LEVETIRACETAM [Suspect]
     Active Substance: LEVETIRACETAM
     Indication: Seizure
     Dosage: UNK, BID(500)
     Route: 065

REACTIONS (2)
  - Postictal paralysis [Unknown]
  - Exposure during pregnancy [Unknown]
